FAERS Safety Report 14122060 (Version 3)
Quarter: 2017Q4

REPORT INFORMATION
  Report Type: Spontaneous
  Country: US (occurrence: US)
  Receive Date: 20171024
  Receipt Date: 20171122
  Transmission Date: 20180321
  Serious: Yes (Death, Hospitalization, Other)
  Sender: FDA-Public Use
  Company Number: US-BRISTOL-MYERS SQUIBB COMPANY-BMS-2017-093379

PATIENT
  Age: 67 Year
  Sex: Female
  Weight: 144 kg

DRUGS (4)
  1. REMODULIN [Suspect]
     Active Substance: TREPROSTINIL
     Indication: PULMONARY HYPERTENSION
     Dosage: 1 DF, UNK
     Route: 058
     Dates: start: 20160211
  2. ADCIRCA [Concomitant]
     Active Substance: TADALAFIL
     Indication: PRODUCT USED FOR UNKNOWN INDICATION
     Route: 065
  3. ELIQUIS [Suspect]
     Active Substance: APIXABAN
     Indication: PRODUCT USED FOR UNKNOWN INDICATION
     Dosage: UNK
     Route: 065
  4. OFEV [Concomitant]
     Active Substance: NINTEDANIB
     Indication: PRODUCT USED FOR UNKNOWN INDICATION
     Route: 065

REACTIONS (12)
  - Renal failure [Unknown]
  - Dyspnoea [Unknown]
  - Vomiting [Unknown]
  - Renal disorder [Unknown]
  - Cough [Unknown]
  - Anaemia [Unknown]
  - Dehydration [Fatal]
  - Post procedural haemorrhage [Unknown]
  - Pericardial effusion [Unknown]
  - Infusion site swelling [Unknown]
  - Lymphadenopathy [Unknown]
  - Lung neoplasm malignant [Unknown]

NARRATIVE: CASE EVENT DATE: 2017
